FAERS Safety Report 25651198 (Version 5)
Quarter: 2025Q3

REPORT INFORMATION
  Report Type: Spontaneous
  Country: EU (occurrence: EU)
  Receive Date: 20250806
  Receipt Date: 20250922
  Transmission Date: 20251020
  Serious: Yes (Death, Other)
  Sender: PFIZER
  Company Number: EU-BIOVITRUM-2025-IT-009705

PATIENT
  Sex: Male

DRUGS (3)
  1. DOXYCYCLINE [Suspect]
     Active Substance: DOXYCYCLINE
     Indication: Arthropod bite
     Dosage: 100 MG, 2X/DAY, 1 TABLET AT 8:00 A.M. AND 1 TABLET AT 8:00 P.M. DAILY FOR 21 CONSECUTIVE DAYS
  2. ZYNLONTA [Suspect]
     Active Substance: LONCASTUXIMAB TESIRINE-LPYL
     Indication: Diffuse large B-cell lymphoma
     Dosage: 0.15 MG/KG, EVERY 3 WEEKS
     Route: 042
     Dates: start: 20250501
  3. ZYNLONTA [Suspect]
     Active Substance: LONCASTUXIMAB TESIRINE-LPYL
     Route: 042
     Dates: start: 20250522, end: 20250522

REACTIONS (7)
  - Diffuse large B-cell lymphoma [Fatal]
  - Malignant neoplasm progression [Fatal]
  - Bone marrow failure [Not Recovered/Not Resolved]
  - Autoimmune disorder [Recovering/Resolving]
  - Thrombocytopenia [Not Recovered/Not Resolved]
  - Arthropod bite [Recovered/Resolved]
  - Off label use [Unknown]

NARRATIVE: CASE EVENT DATE: 20250609
